FAERS Safety Report 10486314 (Version 5)
Quarter: 2015Q2

REPORT INFORMATION
  Report Type: Report from Study
  Country: LB (occurrence: LB)
  Receive Date: 20141001
  Receipt Date: 20150609
  Transmission Date: 20150821
  Serious: No
  Sender: FDA-Public Use
  Company Number: PHHY2014LB051040

PATIENT
  Age: 39 Year
  Sex: Male

DRUGS (1)
  1. TASIGNA [Suspect]
     Active Substance: NILOTINIB
     Indication: PRODUCT USED FOR UNKNOWN INDICATION
     Dosage: 600 MG, QD
     Route: 048
     Dates: start: 20140417

REACTIONS (9)
  - Dry skin [Recovering/Resolving]
  - Sinusitis [Recovering/Resolving]
  - Abdominal pain [Recovering/Resolving]
  - Neck pain [Not Recovered/Not Resolved]
  - Fatigue [Not Recovered/Not Resolved]
  - Leukocytosis [Not Recovered/Not Resolved]
  - Abdominal pain upper [Recovering/Resolving]
  - Granuloma skin [Recovering/Resolving]
  - Headache [Not Recovered/Not Resolved]

NARRATIVE: CASE EVENT DATE: 20140422
